FAERS Safety Report 14201994 (Version 2)
Quarter: 2017Q4

REPORT INFORMATION
  Report Type: Spontaneous
  Country: US (occurrence: US)
  Receive Date: 20171117
  Receipt Date: 20171219
  Transmission Date: 20180321
  Serious: Yes (Other)
  Sender: FDA-Public Use
  Company Number: US-009507513-1711USA004522

PATIENT
  Age: 62 Year
  Sex: Male

DRUGS (1)
  1. ZEPATIER [Suspect]
     Active Substance: ELBASVIR\GRAZOPREVIR
     Indication: CHRONIC HEPATITIS C
     Dosage: UNK
     Route: 048
     Dates: start: 20170810, end: 20171102

REACTIONS (7)
  - Hepatic cirrhosis [Unknown]
  - Blood alkaline phosphatase increased [Unknown]
  - Alanine aminotransferase increased [Unknown]
  - Hepatic fibrosis [Unknown]
  - Blood bilirubin increased [Unknown]
  - Model for end stage liver disease score abnormal [Unknown]
  - Platelet count abnormal [Unknown]

NARRATIVE: CASE EVENT DATE: 2017
